FAERS Safety Report 21333985 (Version 2)
Quarter: 2022Q3

REPORT INFORMATION
  Report Type: Spontaneous
  Country: BR (occurrence: BR)
  Receive Date: 20220914
  Receipt Date: 20220922
  Transmission Date: 20221026
  Serious: Yes (Other)
  Sender: FDA-Public Use
  Company Number: BR-TAKEDA-2022TUS063949

PATIENT
  Sex: Male
  Weight: 75 kg

DRUGS (3)
  1. LISDEXAMFETAMINE DIMESYLATE [Suspect]
     Active Substance: LISDEXAMFETAMINE DIMESYLATE
     Indication: Narcolepsy
     Dosage: 30 MILLIGRAM, QD
     Route: 065
     Dates: start: 202110
  2. VALPROIC ACID [Concomitant]
     Active Substance: VALPROIC ACID
     Indication: Antidepressant therapy
     Dosage: 500 MILLIGRAM, QD
  3. MODAFINIL [Concomitant]
     Active Substance: MODAFINIL
     Dosage: UNK
     Route: 065

REACTIONS (2)
  - Narcolepsy [Unknown]
  - Product availability issue [Recovered/Resolved]
